FAERS Safety Report 4353385-9 (Version None)
Quarter: 2004Q2

REPORT INFORMATION
  Report Type: 
  Country: None (occurrence: None)
  Receive Date: 20040430
  Receipt Date: 20031109
  Transmission Date: 20050107
  Serious: Yes (Other)
  Sender: FDA-Public Use
  Company Number: KII-2003-0009896

PATIENT
  Age: 51 Year
  Sex: Female

DRUGS (2)
  1. OXYCONTIN [Suspect]
     Indication: DRUG USE FOR UNKNOWN INDICATION
  2. ACETAMINOPHEN [Suspect]
     Indication: DRUG USE FOR UNKNOWN INDICATION

REACTIONS (6)
  - ANION GAP INCREASED [None]
  - BLOOD CREATININE INCREASED [None]
  - CHEST PAIN [None]
  - DRUG ABUSER [None]
  - KETOSIS [None]
  - METABOLIC ACIDOSIS [None]
